FAERS Safety Report 8806815 (Version 1)
Quarter: 2012Q4

REPORT INFORMATION
  Report Type: 
  Country: US (occurrence: US)
  Receive Date: 20120925
  Receipt Date: 20120925
  Transmission Date: 20130627
  Serious: No
  Sender: FDA-Public Use
  Company Number: US-COVIDIEN/TYCO HEALTHCARE/MALLINCKRODT-T201201034

PATIENT
  Age: 60 Year
  Sex: Female

DRUGS (2)
  1. KIT FOR THE PREPARATION OF TECHNETIUM (TC-99M) SESTAMIBI INJECTION [Suspect]
     Indication: RADIOISOTOPE SCAN
     Dosage: UNK
     Dates: start: 20120308, end: 20120308
  2. ULTRA-TECHNEKOW DTE GENERATOR [Concomitant]
     Indication: RADIOISOTOPE SCAN
     Dosage: 26 mCi, single
     Dates: start: 20120308, end: 20120308

REACTIONS (1)
  - Drug ineffective [None]
